FAERS Safety Report 25969672 (Version 1)
Quarter: 2025Q4

REPORT INFORMATION
  Report Type: Spontaneous
  Country: CN (occurrence: CN)
  Receive Date: 20251028
  Receipt Date: 20251028
  Transmission Date: 20260118
  Serious: Yes (Other)
  Sender: BRACCO
  Company Number: CN-BRACCO-2025CN07323

PATIENT
  Age: 78 Year
  Sex: Male

DRUGS (2)
  1. GADOBENATE DIMEGLUMINE [Suspect]
     Active Substance: GADOBENATE DIMEGLUMINE
     Indication: Magnetic resonance imaging heart
     Dosage: 7.94 G, SINGLE
     Route: 042
     Dates: start: 20251011, end: 20251011
  2. SODIUM CHLORIDE [Concomitant]
     Active Substance: SODIUM CHLORIDE
     Indication: Flushing
     Dosage: 10 ML, SINGLE
     Route: 042
     Dates: start: 20251011, end: 20251011

REACTIONS (3)
  - White blood cell count decreased [Recovered/Resolved]
  - Pyrexia [Recovered/Resolved]
  - Chills [Recovered/Resolved]

NARRATIVE: CASE EVENT DATE: 20251011
